FAERS Safety Report 23335196 (Version 3)
Quarter: 2024Q4

REPORT INFORMATION
  Report Type: Report from Study
  Country: JP (occurrence: JP)
  Receive Date: 20231225
  Receipt Date: 20241017
  Transmission Date: 20250115
  Serious: Yes (Hospitalization)
  Sender: ROCHE
  Company Number: JP-CHUGAI-2023030772

PATIENT
  Age: 62 Year
  Sex: Female

DRUGS (12)
  1. ENSPRYNG [Suspect]
     Active Substance: SATRALIZUMAB-MWGE
     Indication: Neuromyelitis optica spectrum disorder
     Route: 058
     Dates: start: 20210506, end: 20211104
  2. ENSPRYNG [Suspect]
     Active Substance: SATRALIZUMAB-MWGE
     Route: 058
     Dates: start: 20211202
  3. PREDONINE [Concomitant]
     Active Substance: PREDNISOLONE
     Indication: Neuromyelitis optica spectrum disorder
     Route: 050
     Dates: start: 20190219
  4. PREDONINE [Concomitant]
     Active Substance: PREDNISOLONE
     Dates: start: 20201002, end: 20201008
  5. PREDONINE [Concomitant]
     Active Substance: PREDNISOLONE
     Dates: start: 20201009
  6. PREDONINE [Concomitant]
     Active Substance: PREDNISOLONE
     Dates: start: 20210118, end: 20210804
  7. PREDONINE [Concomitant]
     Active Substance: PREDNISOLONE
     Dates: start: 20210805, end: 20220302
  8. PREDONINE [Concomitant]
     Active Substance: PREDNISOLONE
     Dates: start: 20220303, end: 20220405
  9. COVID-19 VACCINE MRNA [Concomitant]
     Dates: start: 202109
  10. COVID-19 VACCINE MRNA [Concomitant]
     Dates: start: 202208
  11. COVID-19 VACCINE MRNA [Concomitant]
     Dates: start: 202212
  12. COVID-19 VACCINE MRNA [Concomitant]
     Dates: start: 202108

REACTIONS (1)
  - COVID-19 [Recovered/Resolved]

NARRATIVE: CASE EVENT DATE: 20230719
